FAERS Safety Report 11910693 (Version 1)
Quarter: 2016Q1

REPORT INFORMATION
  Report Type: Spontaneous
  Country: IT (occurrence: IT)
  Receive Date: 20160112
  Receipt Date: 20160112
  Transmission Date: 20160526
  Serious: Yes (Other)
  Sender: FDA-Public Use
  Company Number: IT-WATSON-2015-29129

PATIENT
  Age: 70 Year
  Sex: Male

DRUGS (1)
  1. MIRTAZAPINA ACTAVIS [Suspect]
     Active Substance: MIRTAZAPINE
     Indication: BIPOLAR II DISORDER
     Dosage: 30 MG, DAILY
     Route: 048
     Dates: start: 20141201, end: 20151103

REACTIONS (1)
  - Hepatic steatosis [Not Recovered/Not Resolved]

NARRATIVE: CASE EVENT DATE: 20151103
